FAERS Safety Report 4303816-5 (Version None)
Quarter: 2004Q1

REPORT INFORMATION
  Report Type: 
  Country: None (occurrence: None)
  Receive Date: 20040224
  Receipt Date: 20040224
  Transmission Date: 20041129
  Serious: Yes (Hospitalization)
  Sender: FDA-Public Use
  Company Number: None

PATIENT
  Age: 42 Year
  Sex: Male
  Weight: 90.7194 kg

DRUGS (2)
  1. PACLITAXEL [Suspect]
     Dosage: 176 MG IV (OVER 1 HOUR)
     Route: 042
     Dates: start: 20031008
  2. CARBOPLATIN [Suspect]
     Dosage: 250 MG IV (OVER 45 MINS)
     Route: 042
     Dates: start: 20040122

REACTIONS (3)
  - ABDOMINAL PAIN UPPER [None]
  - DYSPNOEA [None]
  - VOMITING [None]
